FAERS Safety Report 11061440 (Version 2)
Quarter: 2015Q2

REPORT INFORMATION
  Report Type: Spontaneous
  Country: US (occurrence: US)
  Receive Date: 20150424
  Receipt Date: 20150512
  Transmission Date: 20150821
  Serious: No
  Sender: FDA-Public Use
  Company Number: US-PFIZER INC-2015134983

PATIENT
  Age: 55 Year
  Sex: Female
  Weight: 70 kg

DRUGS (3)
  1. ZITHROMAX [Suspect]
     Active Substance: AZITHROMYCIN DIHYDRATE
     Indication: SINUSITIS
     Dosage: 1 DF, 1X/DAY
     Dates: start: 20150402, end: 20150405
  2. ZITHROMAX [Suspect]
     Active Substance: AZITHROMYCIN DIHYDRATE
     Indication: BRONCHITIS
     Dosage: 1 DF, 2X/DAY
     Dates: start: 20150401, end: 20150401
  3. ZITHROMAX [Suspect]
     Active Substance: AZITHROMYCIN DIHYDRATE
     Dosage: 1 DF, 4X/DAY
     Route: 048
     Dates: start: 20150331, end: 20150405

REACTIONS (5)
  - Eyelid disorder [Unknown]
  - Eyelid ptosis [Recovered/Resolved]
  - Visual impairment [Unknown]
  - Impaired driving ability [Unknown]
  - Headache [Unknown]

NARRATIVE: CASE EVENT DATE: 201504
